FAERS Safety Report 19825660 (Version 1)
Quarter: 2021Q3

REPORT INFORMATION
  Report Type: Spontaneous
  Country: US (occurrence: US)
  Receive Date: 20210914
  Receipt Date: 20210914
  Transmission Date: 20211014
  Serious: Yes (Other)
  Sender: FDA-Public Use
  Company Number: None

PATIENT
  Age: 28 Year
  Sex: Female
  Weight: 112.5 kg

DRUGS (6)
  1. CASIRIVIMAB AND IMDEVIMAB [Suspect]
     Active Substance: CASIRIVIMAB\IMDEVIMAB
     Indication: COVID-19
     Route: 042
  2. VITAMIN C [Concomitant]
     Active Substance: ASCORBIC ACID
  3. REACTIVATED ZINC [Concomitant]
  4. AMOXICILLIN. [Concomitant]
     Active Substance: AMOXICILLIN
  5. VITAMIN D3 [Concomitant]
     Active Substance: CHOLECALCIFEROL
  6. PEDIALYTE [Concomitant]
     Active Substance: POTASSIUM CITRATE\SODIUM CITRATE\ZINC

REACTIONS (3)
  - Confusional state [None]
  - Myalgia [None]
  - Wheezing [None]

NARRATIVE: CASE EVENT DATE: 20210913
